FAERS Safety Report 9780582 (Version 2)
Quarter: 2013Q4

REPORT INFORMATION
  Report Type: Other
  Country: US (occurrence: US)
  Receive Date: 20131224
  Receipt Date: 20131224
  Transmission Date: 20140711
  Serious: Yes (Other)
  Sender: FDA-Public Use
  Company Number: US-SHIRE-ALL1-2013-06756

PATIENT
  Age: 13 Year
  Sex: Male

DRUGS (1)
  1. ELAPRASE [Suspect]
     Indication: MUCOPOLYSACCHARIDOSIS II
     Dosage: 24 MG, 1X/WEEK
     Route: 041
     Dates: start: 20070716

REACTIONS (6)
  - Spinal osteoarthritis [Unknown]
  - Tremor [Recovered/Resolved]
  - Abasia [Recovering/Resolving]
  - Insomnia [Unknown]
  - Mental impairment [Unknown]
  - Pain [Unknown]
